FAERS Safety Report 9120597 (Version 3)
Quarter: 2013Q3

REPORT INFORMATION
  Report Type: Spontaneous
  Country: JP (occurrence: JP)
  Receive Date: 20130226
  Receipt Date: 20130711
  Transmission Date: 20140515
  Serious: Yes (Hospitalization, Other)
  Sender: FDA-Public Use
  Company Number: JP-OTSUKA-JP-2013-10434

PATIENT
  Age: 82 Year
  Sex: Female

DRUGS (7)
  1. SAMSCA [Suspect]
     Dosage: 7.5 MG MILLIGRAM(S), DAILY DOSE
     Route: 048
  2. WARFARIN K [Concomitant]
     Dosage: 1 MG MILLIGRAM(S), DAILY DOSE
     Route: 048
  3. DIART [Concomitant]
     Dosage: 30 MG MILLIGRAM(S), DAILY DOSE
     Route: 048
  4. DIOVAN [Concomitant]
     Dosage: 40 MG MILLIGRAM(S), DAILY DOSE
     Route: 048
  5. HALCION [Concomitant]
     Dosage: 0.25 MG MILLIGRAM(S), DAILY DOSE
     Route: 048
  6. SEROQUEL [Concomitant]
     Route: 048
  7. SERENACE [Concomitant]
     Dosage: UNK, PRN
     Route: 042

REACTIONS (2)
  - Altered state of consciousness [Recovered/Resolved]
  - Hypernatraemia [Recovered/Resolved]
